FAERS Safety Report 9738432 (Version 2)
Quarter: 2014Q1

REPORT INFORMATION
  Report Type: Report from Study
  Country: US (occurrence: US)
  Receive Date: 20131208
  Receipt Date: 20140319
  Transmission Date: 20141002
  Serious: Yes (Life-Threatening, Hospitalization)
  Sender: FDA-Public Use
  Company Number: US-ROCHE-1315323

PATIENT
  Sex: Female

DRUGS (1)
  1. ACTEMRA [Suspect]
     Indication: RHEUMATOID ARTHRITIS
     Dosage: TOTAL MONTHLY DOSE: 360 MG
     Route: 042
     Dates: start: 20120312

REACTIONS (3)
  - Swollen tongue [Recovered/Resolved]
  - Hypoaesthesia [Unknown]
  - Hypersensitivity [Recovered/Resolved]
